FAERS Safety Report 25384441 (Version 3)
Quarter: 2025Q3

REPORT INFORMATION
  Report Type: Spontaneous
  Country: CA (occurrence: CA)
  Receive Date: 20250602
  Receipt Date: 20250901
  Transmission Date: 20251020
  Serious: Yes (Other)
  Sender: APOTEX
  Company Number: CA-APOTEX-2025AP007825

PATIENT
  Sex: Female

DRUGS (2)
  1. FLUTICASONE PROPIONATE [Suspect]
     Active Substance: FLUTICASONE PROPIONATE
     Indication: Cough
  2. FLUTICASONE PROPIONATE [Suspect]
     Active Substance: FLUTICASONE PROPIONATE
     Dates: start: 20250514

REACTIONS (4)
  - Choking [Recovered/Resolved]
  - Product delivery mechanism issue [Unknown]
  - Product contamination physical [Unknown]
  - Expired product administered [Unknown]

NARRATIVE: CASE EVENT DATE: 20250514
